FAERS Safety Report 4978117-2 (Version None)
Quarter: 2006Q2

REPORT INFORMATION
  Report Type: 
  Country: None (occurrence: None)
  Receive Date: 20060417
  Receipt Date: 20060404
  Transmission Date: 20061013
  Serious: Yes (Death, Hospitalization)
  Sender: FDA-Public Use
  Company Number: 2006BI001641

PATIENT
  Age: 76 Year
  Sex: Female
  Weight: 77.1115 kg

DRUGS (7)
  1. AMEVIVE [Suspect]
     Indication: PSORIASIS
     Dosage: 15 MG;QW;IM
     Route: 030
     Dates: end: 20051122
  2. AMEVIVE [Suspect]
     Indication: PSORIASIS
     Dosage: 15 MG;QW;IM
     Route: 030
     Dates: start: 20040909
  3. ATENOLOL [Concomitant]
  4. SYNTHROID [Concomitant]
  5. FOLIC ACID [Concomitant]
  6. TYLENOL (CAPLET) [Concomitant]
  7. METHOTREXATE [Concomitant]

REACTIONS (23)
  - ANAEMIA [None]
  - APHASIA [None]
  - ASCITES [None]
  - ASTHENIA [None]
  - CARDIAC FAILURE CONGESTIVE [None]
  - CEREBRAL HAEMORRHAGE [None]
  - CSF TEST ABNORMAL [None]
  - DEPRESSED LEVEL OF CONSCIOUSNESS [None]
  - ELECTROENCEPHALOGRAM ABNORMAL [None]
  - ENCEPHALOPATHY [None]
  - ENDOSCOPY SMALL INTESTINE ABNORMAL [None]
  - FALL [None]
  - HAEMATEMESIS [None]
  - HYPERTENSION [None]
  - HYPOKALAEMIA [None]
  - INTRAVENTRICULAR HAEMORRHAGE [None]
  - LIVER DISORDER [None]
  - MELAENA [None]
  - MENINGITIS [None]
  - MENTAL STATUS CHANGES [None]
  - RENAL FAILURE ACUTE [None]
  - RESPIRATORY FAILURE [None]
  - VARICES OESOPHAGEAL [None]
